FAERS Safety Report 8435478-X (Version None)
Quarter: 2012Q2

REPORT INFORMATION
  Report Type: 
  Country: None (occurrence: None)
  Receive Date: 20120614
  Receipt Date: 20120605
  Transmission Date: 20120825
  Serious: Yes (Hospitalization)
  Sender: FDA-Public Use
  Company Number: US-BAYER-2012-053226

PATIENT
  Age: 32 Year
  Sex: Female
  Weight: 63.946 kg

DRUGS (13)
  1. AZITHROMYCIN [Concomitant]
     Dosage: 250 MG, UNK
     Dates: start: 20081102
  2. PROAIR HFA [Concomitant]
     Dosage: 8.5 G, UNK
     Route: 045
     Dates: start: 20081102
  3. DAYQUIL [DEXTROMET HBR,GUAIF,PARACET,PSEUDOEPH HCL] [Concomitant]
  4. YAZ [Suspect]
     Indication: CONTRACEPTION
     Dosage: UNK
     Dates: start: 20080903, end: 20081113
  5. YAZ [Suspect]
     Indication: PREMENSTRUAL SYNDROME
  6. CHERATUSSIN AC [Concomitant]
     Dosage: UNK
     Dates: start: 20081102
  7. LONOX [Concomitant]
     Dosage: 2.5 MG, UNK
  8. ZOLOFT [Concomitant]
     Indication: DEPRESSION
  9. CLARITIN-D [Concomitant]
  10. YAZ [Suspect]
  11. ZOLOFT [Concomitant]
     Indication: ANXIETY
     Dosage: 100 MG, DAILY
     Dates: start: 19960101
  12. ZOFRAN [Concomitant]
  13. MULTI-VITAMIN [Concomitant]

REACTIONS (7)
  - INJURY [None]
  - PLEURAL EFFUSION [None]
  - DYSPNOEA [None]
  - PULMONARY EMBOLISM [None]
  - PAIN [None]
  - CHEST PAIN [None]
  - ATELECTASIS [None]
